FAERS Safety Report 11279199 (Version 1)
Quarter: 2015Q3

REPORT INFORMATION
  Report Type: Spontaneous
  Country: US (occurrence: None)
  Receive Date: 20150715
  Receipt Date: 20150715
  Transmission Date: 20151125
  Serious: Yes (Other)
  Sender: FDA-Public Use
  Company Number: US-H14001-15-01177

PATIENT
  Age: 7 Year
  Sex: Male

DRUGS (1)
  1. TOPIRAMATE (TOPIRAMATE) (UNKNOWN) (TOPIRAMATE) [Suspect]
     Active Substance: TOPIRAMATE
     Indication: PRODUCT USED FOR UNKNOWN INDICATION

REACTIONS (6)
  - Retinal disorder [None]
  - Myopia [None]
  - Skin striae [None]
  - Vision blurred [None]
  - Toxicity to various agents [None]
  - Flat anterior chamber of eye [None]
